FAERS Safety Report 21544924 (Version 1)
Quarter: 2022Q4

REPORT INFORMATION
  Report Type: Report from Study
  Country: PR (occurrence: PR)
  Receive Date: 20221102
  Receipt Date: 20221102
  Transmission Date: 20230113
  Serious: No
  Sender: FDA-Public Use
  Company Number: PR-ABBVIE-4185096

PATIENT
  Sex: Male
  Weight: 74 kg

DRUGS (2)
  1. HUMIRA [Suspect]
     Active Substance: ADALIMUMAB
     Indication: Rheumatoid arthritis
     Dosage: 40MG/0.8ML?STRENGTH: 40 MILLIGRAM
     Route: 058
     Dates: start: 20160803
  2. HUMIRA [Suspect]
     Active Substance: ADALIMUMAB
     Dosage: 40MG/0.4ML?STRENGTH: 40 MILLIGRAM
     Route: 058
     Dates: end: 202206

REACTIONS (4)
  - COVID-19 [Recovered/Resolved]
  - Drug ineffective [Unknown]
  - Mycoplasma infection [Recovered/Resolved]
  - Ear pain [Recovered/Resolved]

NARRATIVE: CASE EVENT DATE: 20220901
